FAERS Safety Report 4417173-7 (Version None)
Quarter: 2004Q3

REPORT INFORMATION
  Report Type: 
  Country: None (occurrence: None)
  Receive Date: 20040702
  Receipt Date: 20040517
  Transmission Date: 20050211
  Serious: No
  Sender: FDA-Public Use
  Company Number: US076821

PATIENT
  Age: 64 Year
  Sex: Male
  Weight: 118 kg

DRUGS (9)
  1. SENSIPAR [Suspect]
     Indication: HYPERPARATHYROIDISM
     Dosage: 30 MG, 1 IN 1 DAYS, PO
     Route: 048
     Dates: start: 20040514, end: 20040514
  2. ALUMINUM HYDROXIDE GEL, DRIED [Concomitant]
  3. TERAZOSIN HYDROCHLORIDE [Concomitant]
  4. TOLTERODINE TARTRATE [Concomitant]
  5. LORATADINE [Concomitant]
  6. DIPHENHYDRAMINE HCL [Concomitant]
  7. ALLOPURINOL [Concomitant]
  8. ALBUTEROL SULFATE [Concomitant]
  9. COLCHICINE [Concomitant]

REACTIONS (1)
  - DIARRHOEA [None]
